FAERS Safety Report 6832695-7 (Version None)
Quarter: 2010Q3

REPORT INFORMATION
  Report Type: 
  Country: None (occurrence: None)
  Receive Date: 20100712
  Receipt Date: 20070521
  Transmission Date: 20110219
  Serious: No
  Sender: FDA-Public Use
  Company Number: US-PFIZER INC-2007021076

PATIENT
  Sex: Male
  Weight: 93.44 kg

DRUGS (3)
  1. VARENICLINE [Suspect]
     Indication: SMOKING CESSATION THERAPY
     Route: 048
     Dates: start: 20061201
  2. METHADONE HCL [Concomitant]
  3. OTHER RESPIRATORY SYSTEM PRODUCTS [Concomitant]
     Indication: CHRONIC OBSTRUCTIVE PULMONARY DISEASE
     Route: 055

REACTIONS (1)
  - SOMNOLENCE [None]
